FAERS Safety Report 12923471 (Version 1)
Quarter: 2016Q4

REPORT INFORMATION
  Report Type: Spontaneous
  Country: US (occurrence: US)
  Receive Date: 20161108
  Receipt Date: 20161108
  Transmission Date: 20170207
  Serious: Yes (Hospitalization)
  Sender: FDA-Public Use
  Company Number: US-TEVA-710905USA

PATIENT
  Age: 19 Year
  Sex: Male
  Weight: 75.82 kg

DRUGS (3)
  1. METRONIDAZOLE. [Suspect]
     Active Substance: METRONIDAZOLE
     Indication: GASTROENTERITIS BACTERIAL
     Route: 048
     Dates: start: 201606
  2. CIPROFLOXACIN. [Concomitant]
     Active Substance: CIPROFLOXACIN
  3. NYSTATIN. [Concomitant]
     Active Substance: NYSTATIN

REACTIONS (4)
  - Delusional disorder, unspecified type [Not Recovered/Not Resolved]
  - Amnesia [Not Recovered/Not Resolved]
  - Quality of life decreased [Unknown]
  - Feeling abnormal [Not Recovered/Not Resolved]

NARRATIVE: CASE EVENT DATE: 2016
